FAERS Safety Report 5414680-5 (Version None)
Quarter: 2007Q3

REPORT INFORMATION
  Report Type: 
  Country: None (occurrence: None)
  Receive Date: 20070813
  Receipt Date: 20070806
  Transmission Date: 20080115
  Serious: Yes (Hospitalization)
  Sender: FDA-Public Use
  Company Number: 2007BI013075

PATIENT
  Age: 51 Year
  Sex: Female

DRUGS (2)
  1. NATALIZUMAB [Suspect]
     Indication: MULTIPLE SCLEROSIS
     Dosage: 300 MG; QM; IV
     Route: 042
     Dates: start: 20061102, end: 20070614
  2. AVONEX [Concomitant]

REACTIONS (6)
  - CHEST PAIN [None]
  - CONDITION AGGRAVATED [None]
  - CREST SYNDROME [None]
  - INFECTION [None]
  - MULTIPLE SCLEROSIS [None]
  - RASH [None]
